FAERS Safety Report 4511230-2 (Version None)
Quarter: 2004Q4

REPORT INFORMATION
  Report Type: 
  Country: None (occurrence: None)
  Receive Date: 20041129
  Receipt Date: 20041115
  Transmission Date: 20050328
  Serious: Yes (Other)
  Sender: FDA-Public Use
  Company Number: FR-JNJFOC-20040404911

PATIENT
  Age: 58 Year
  Sex: Male
  Weight: 66 kg

DRUGS (5)
  1. REMICADE [Suspect]
     Route: 042
  2. CORTANCYL [Concomitant]
     Route: 049
  3. APRANAX [Concomitant]
     Route: 049
  4. MOPRAL [Concomitant]
     Route: 049
  5. DOLIPRANE [Concomitant]
     Route: 049

REACTIONS (2)
  - DRUG INEFFECTIVE [None]
  - EOSINOPHILIA [None]
